FAERS Safety Report 17547022 (Version 1)
Quarter: 2020Q1

REPORT INFORMATION
  Report Type: Spontaneous
  Country: DE (occurrence: DE)
  Receive Date: 20200316
  Receipt Date: 20200316
  Transmission Date: 20200409
  Serious: Yes (Death, Hospitalization, Other)
  Sender: FDA-Public Use
  Company Number: DE-PFIZER INC-2020113963

PATIENT
  Age: 81 Year
  Sex: Female

DRUGS (1)
  1. TOFACITINIB CITRATE [Suspect]
     Active Substance: TOFACITINIB CITRATE
     Indication: RHEUMATOID ARTHRITIS
     Route: 048
     Dates: start: 201806

REACTIONS (5)
  - Staphylococcal sepsis [Fatal]
  - Agranulocytosis [Not Recovered/Not Resolved]
  - Multiple organ dysfunction syndrome [Fatal]
  - Candida sepsis [Fatal]
  - Device related infection [Not Recovered/Not Resolved]

NARRATIVE: CASE EVENT DATE: 201907
